FAERS Safety Report 7622394-6 (Version None)
Quarter: 2011Q3

REPORT INFORMATION
  Report Type: 
  Country: None (occurrence: None)
  Receive Date: 20110720
  Receipt Date: 20110706
  Transmission Date: 20111222
  Serious: Yes (Other)
  Sender: FDA-Public Use
  Company Number: FR-UCBSA-031382

PATIENT
  Sex: Female
  Weight: 47 kg

DRUGS (7)
  1. METHOTREXATE [Concomitant]
     Indication: SJOGREN'S SYNDROME
     Route: 048
  2. PREDNISONE [Concomitant]
     Indication: RHEUMATOID ARTHRITIS
     Route: 048
  3. CIMZIA [Suspect]
     Indication: SJOGREN'S SYNDROME
     Dosage: 2 INJECTIONS OF 200 MG ONE SINGLE DAY
     Route: 058
     Dates: start: 20110406, end: 20110406
  4. METHOTREXATE [Concomitant]
     Indication: RHEUMATOID ARTHRITIS
     Route: 048
  5. ACTONEL [Concomitant]
     Indication: OSTEOPOROSIS
     Route: 048
  6. CIMZIA [Suspect]
     Indication: POLYARTHRITIS
     Dosage: 2 INJECTIONS OF 200 MG ONE SINGLE DAY
     Route: 058
     Dates: start: 20110406, end: 20110406
  7. PREDNISONE [Concomitant]
     Indication: SJOGREN'S SYNDROME
     Route: 048

REACTIONS (1)
  - URTICARIA [None]
